FAERS Safety Report 12423618 (Version 1)
Quarter: 2016Q2

REPORT INFORMATION
  Report Type: Spontaneous
  Country: US (occurrence: US)
  Receive Date: 20160601
  Receipt Date: 20160601
  Transmission Date: 20160815
  Serious: No
  Sender: FDA-Public Use
  Company Number: US-NOVEN PHARMACEUTICALS, INC.-US2015000683

PATIENT
  Age: 9 Year
  Sex: Male

DRUGS (1)
  1. DAYTRANA [Suspect]
     Active Substance: METHYLPHENIDATE
     Indication: ATTENTION DEFICIT/HYPERACTIVITY DISORDER
     Dosage: 15 MG, UNKNOWN
     Route: 062
     Dates: start: 20150807

REACTIONS (7)
  - Abnormal behaviour [Recovering/Resolving]
  - Drug effect increased [Recovering/Resolving]
  - Decreased appetite [Recovering/Resolving]
  - Mydriasis [Recovering/Resolving]
  - Application site pruritus [Recovering/Resolving]
  - Hypokinesia [Recovering/Resolving]
  - Application site paraesthesia [Recovering/Resolving]

NARRATIVE: CASE EVENT DATE: 20150807
